FAERS Safety Report 17211092 (Version 1)
Quarter: 2019Q4

REPORT INFORMATION
  Report Type: Report from Study
  Country: None (occurrence: TR)
  Receive Date: 20191228
  Receipt Date: 20191228
  Transmission Date: 20200122
  Serious: Yes (Other)
  Sender: FDA-Public Use
  Company Number: TR-ABBVIE-19K-161-3208798-00

PATIENT
  Age: 75 Year
  Sex: Female
  Weight: 82 kg

DRUGS (5)
  1. SEROQUEL XR [Concomitant]
     Active Substance: QUETIAPINE FUMARATE
     Indication: DEPRESSION
     Route: 048
     Dates: start: 2015
  2. CIPRALEX [Concomitant]
     Active Substance: ESCITALOPRAM OXALATE
     Indication: DEPRESSION
     Route: 048
     Dates: start: 2015
  3. NORVASC [Concomitant]
     Active Substance: AMLODIPINE BESYLATE
     Indication: HYPERTENSION
     Route: 048
     Dates: start: 2010
  4. LEVODOPA/CARBIDOPA [Suspect]
     Active Substance: CARBIDOPA\LEVODOPA
     Indication: PARKINSON^S DISEASE
     Dosage: MORNING DOSE(ML):6.00 CONTINUOUS DOSE(ML):4.10 EXTRA DOSE(ML):1.50
     Route: 050
     Dates: start: 20160801
  5. MADOPAR HBS [Concomitant]
     Active Substance: BENSERAZIDE HYDROCHLORIDE\LEVODOPA
     Indication: PARKINSON^S DISEASE
     Dosage: FREQUENCY:- 1X2
     Route: 048
     Dates: start: 2012

REACTIONS (2)
  - Blood urine present [Not Recovered/Not Resolved]
  - Bladder neoplasm [Not Recovered/Not Resolved]

NARRATIVE: CASE EVENT DATE: 201910
